FAERS Safety Report 20226281 (Version 4)
Quarter: 2022Q1

REPORT INFORMATION
  Report Type: Spontaneous
  Country: US (occurrence: US)
  Receive Date: 20211224
  Receipt Date: 20220130
  Transmission Date: 20220423
  Serious: Yes (Other)
  Sender: FDA-Public Use
  Company Number: US-JNJFOC-20211235611

PATIENT
  Age: 91 Year
  Sex: Female
  Weight: 55.388 kg

DRUGS (2)
  1. XARELTO [Suspect]
     Active Substance: RIVAROXABAN
     Indication: Anticoagulant therapy
     Route: 048
     Dates: start: 2017
  2. METOPROLOL [Concomitant]
     Active Substance: METOPROLOL
     Indication: Product used for unknown indication

REACTIONS (5)
  - Cardiac pacemaker replacement [Unknown]
  - Oedema peripheral [Recovering/Resolving]
  - Weight increased [Recovering/Resolving]
  - Contusion [Unknown]
  - Product packaging issue [Unknown]

NARRATIVE: CASE EVENT DATE: 20210101
